FAERS Safety Report 22114955 (Version 2)
Quarter: 2023Q2

REPORT INFORMATION
  Report Type: Report from Study
  Country: FR (occurrence: None)
  Receive Date: 20230320
  Receipt Date: 20230628
  Transmission Date: 20230721
  Serious: Yes (Hospitalization)
  Sender: FDA-Public Use
  Company Number: FR-Eisai Medical Research-EC-2023-136389

PATIENT
  Age: 58 Year
  Sex: Female
  Weight: 57 kg

DRUGS (7)
  1. LENVATINIB [Suspect]
     Active Substance: LENVATINIB
     Indication: Uveal melanoma
     Dosage: EVENT CYCLE NUMBER: 4
     Route: 048
     Dates: start: 20230103, end: 20230306
  2. LENVATINIB [Suspect]
     Active Substance: LENVATINIB
     Indication: Metastatic ocular melanoma
  3. PEMBROLIZUMAB [Suspect]
     Active Substance: PEMBROLIZUMAB
     Indication: Uveal melanoma
     Dosage: EVENT CYCLE NUMBER: 4, FREQUENCY UNKNOWN
     Route: 042
     Dates: start: 20230103, end: 20230306
  4. PEMBROLIZUMAB [Suspect]
     Active Substance: PEMBROLIZUMAB
     Indication: Metastatic ocular melanoma
  5. DOLIPRANE [Concomitant]
     Active Substance: ACETAMINOPHEN
     Dates: start: 20230228
  6. IBUPROFEN [Concomitant]
     Active Substance: IBUPROFEN
     Dates: start: 20230228, end: 20230305
  7. TRAMADOL [Concomitant]
     Active Substance: TRAMADOL
     Dates: start: 20230306

REACTIONS (1)
  - Cauda equina syndrome [Not Recovered/Not Resolved]

NARRATIVE: CASE EVENT DATE: 20230309
